FAERS Safety Report 13356573 (Version 2)
Quarter: 2017Q2

REPORT INFORMATION
  Report Type: Report from Study
  Country: CA (occurrence: CA)
  Receive Date: 20170321
  Receipt Date: 20170418
  Transmission Date: 20170830
  Serious: Yes (Hospitalization)
  Sender: FDA-Public Use
  Company Number: CA-VERTEX PHARMACEUTICALS-2017-001570

PATIENT
  Age: 35 Year
  Sex: Male
  Weight: 60 kg

DRUGS (25)
  1. ORKAMBI [Suspect]
     Active Substance: IVACAFTOR\LUMACAFTOR
     Indication: CYSTIC FIBROSIS
     Dosage: 200/125MG (ONE PILL)
     Route: 048
     Dates: start: 20160819, end: 20160820
  2. ADVIL [Concomitant]
     Active Substance: IBUPROFEN
     Dosage: 2 DF, BID
     Route: 048
  3. PANTOLOC [Concomitant]
     Active Substance: PANTOPRAZOLE SODIUM
     Dosage: 40 MG, BID
     Route: 048
  4. COMBIVENT [Concomitant]
     Active Substance: ALBUTEROL SULFATE\IPRATROPIUM BROMIDE
     Dosage: 1 DF, BID
     Route: 055
  5. ZITHROMAX [Concomitant]
     Active Substance: AZITHROMYCIN DIHYDRATE
     Dosage: 2 DF, EVERY MONDAY WEDNESDAY AND FRIDAY
  6. ORKAMBI [Suspect]
     Active Substance: IVACAFTOR\LUMACAFTOR
     Dosage: 2 PILLS IN THE MORNING AND ONE PILL AT NIGHT
     Route: 048
     Dates: start: 20160821, end: 20160822
  7. ATIVAN [Concomitant]
     Active Substance: LORAZEPAM
  8. VENTOLIN [Concomitant]
     Active Substance: ALBUTEROL SULFATE
     Dosage: 2.5 MG, BID
     Route: 048
  9. MULTIVITAMINS [Concomitant]
     Active Substance: VITAMINS
     Dosage: 1 DF, BID
     Route: 048
  10. FERROUS SULFATE. [Concomitant]
     Active Substance: FERROUS SULFATE
     Indication: BLOOD IRON DECREASED
     Dosage: 300 MG, QD
  11. MELATONIN [Concomitant]
     Active Substance: MELATONIN
     Dosage: 9 MG, QD
     Route: 048
  12. IMOVANE [Concomitant]
     Active Substance: ZOPICLONE
  13. INSULIN LISPRO [Concomitant]
     Active Substance: INSULIN LISPRO
     Dosage: TAKE MEALS ACCORDING TO BLOOD GLUCOSE
     Route: 058
  14. CIPRO [Concomitant]
     Active Substance: CIPROFLOXACIN HYDROCHLORIDE
  15. ORKAMBI [Suspect]
     Active Substance: IVACAFTOR\LUMACAFTOR
     Dosage: 1 DF, BID
     Route: 048
     Dates: start: 20160820, end: 20160821
  16. ORKAMBI [Suspect]
     Active Substance: IVACAFTOR\LUMACAFTOR
     Dosage: 2 DF, BID
     Route: 048
     Dates: start: 20160822
  17. BACTRIM DS [Concomitant]
     Active Substance: SULFAMETHOXAZOLE\TRIMETHOPRIM
     Dosage: 1 DF, BID
     Route: 048
  18. LANTUS [Concomitant]
     Active Substance: INSULIN GLARGINE
     Dosage: 5 UT, QD
  19. COTAZYM ECS [Concomitant]
     Dosage: 4-5 PER MEALS AND 2-3 PER SNACK
  20. DICLOFENAC [Concomitant]
     Active Substance: DICLOFENAC
     Dosage: ONE APPLICATION AS NEEDED
     Route: 061
  21. TRAMACET [Concomitant]
     Active Substance: ACETAMINOPHEN\TRAMADOL
     Indication: PAIN
     Dosage: ONE TO TABS EVERY SIX HOURS FOR PAIN
     Route: 048
  22. HYPERTONIC SALINE SOLUTION [Concomitant]
     Active Substance: SODIUM CHLORIDE
     Dosage: UNK, BID
  23. COLYMYCIN [Concomitant]
     Indication: RESPIRATORY TRACT INFECTION
     Dosage: 150 MG, BID
     Route: 055
  24. ADVAIR HFA [Concomitant]
     Active Substance: FLUTICASONE PROPIONATE\SALMETEROL XINAFOATE
     Dosage: 2 DF, BID
     Route: 055
  25. PULMOZYME [Concomitant]
     Active Substance: DORNASE ALFA
     Dosage: 2.5 MG, BID

REACTIONS (4)
  - Rib fracture [Unknown]
  - Influenza [Recovered/Resolved]
  - Cough [Not Recovered/Not Resolved]
  - Infective pulmonary exacerbation of cystic fibrosis [Recovered/Resolved]

NARRATIVE: CASE EVENT DATE: 201610
